FAERS Safety Report 6494839-9 (Version None)
Quarter: 2009Q4

REPORT INFORMATION
  Report Type: 
  Country: None (occurrence: None)
  Receive Date: 20091214
  Receipt Date: 20090403
  Transmission Date: 20100525
  Serious: No
  Sender: FDA-Public Use
  Company Number: US-BRISTOL-MYERS SQUIBB COMPANY-14568554

PATIENT
  Age: 5 Decade
  Sex: Male

DRUGS (2)
  1. ABILIFY [Suspect]
     Indication: DEPRESSION
     Dosage: DOSE REDUCED TO 5MG 1/2 TAB QD(2.5 MG), THEN DRUG STOPPED
     Dates: start: 20090311, end: 20090327
  2. CYMBALTA [Concomitant]

REACTIONS (2)
  - AKATHISIA [None]
  - SUICIDAL IDEATION [None]
